FAERS Safety Report 9281603 (Version 1)
Quarter: 2013Q2

REPORT INFORMATION
  Report Type: Spontaneous
  Country: US (occurrence: US)
  Receive Date: 20130509
  Receipt Date: 20130509
  Transmission Date: 20140414
  Serious: Yes (Other)
  Sender: FDA-Public Use
  Company Number: US-009507513-1304USA017754

PATIENT
  Age: 32 Year
  Sex: Female
  Weight: 78.46 kg

DRUGS (4)
  1. NUVARING [Suspect]
     Dosage: Q 4 WEEKS SUPPLY 3 MONTHS
     Route: 067
     Dates: start: 201008, end: 20130409
  2. AFLURIA [Suspect]
     Indication: PROPHYLAXIS
  3. VALTREX [Concomitant]
     Dosage: UNK, PRN
     Route: 048
  4. DIPHTHERIA TOXOID (+) PERTUSSIS ACELLULAR VACCINE (UNSPECIFIED) (+) TE [Concomitant]
     Indication: PROPHYLAXIS

REACTIONS (5)
  - Thrombophlebitis superficial [Not Recovered/Not Resolved]
  - Smear cervix abnormal [Unknown]
  - Back pain [Recovered/Resolved]
  - Arthralgia [Unknown]
  - Vaginal infection [Unknown]
